FAERS Safety Report 18525682 (Version 5)
Quarter: 2022Q2

REPORT INFORMATION
  Report Type: Spontaneous
  Country: JP (occurrence: JP)
  Receive Date: 20201119
  Receipt Date: 20220617
  Transmission Date: 20220720
  Serious: Yes (Hospitalization, Other)
  Sender: FDA-Public Use
  Company Number: JP-BAXTER-2020BAX023646

PATIENT
  Age: 56 Year
  Sex: Female

DRUGS (1)
  1. DOXORUBICIN [Suspect]
     Active Substance: DOXORUBICIN
     Indication: Ovarian cancer recurrent
     Dosage: PLD WAS ADMINISTERED FOR 22 MONTHS AND TREATMENT WAS COMPLETED AT A TOTAL DOSE OF 1140 MG/M2
     Route: 042
     Dates: start: 20151127, end: 20170928

REACTIONS (2)
  - Leukoplakia oral [Recovered/Resolved]
  - Squamous cell carcinoma of the tongue [Recovered/Resolved]

NARRATIVE: CASE EVENT DATE: 20171101
